FAERS Safety Report 4888066-6 (Version None)
Quarter: 2006Q1

REPORT INFORMATION
  Report Type: 
  Country: None (occurrence: None)
  Receive Date: 20060123
  Receipt Date: 20060110
  Transmission Date: 20060701
  Serious: Yes (Hospitalization)
  Sender: FDA-Public Use
  Company Number: NO-MERCK-0601NOR00010

PATIENT
  Age: 63 Year
  Sex: Male

DRUGS (10)
  1. VIOXX [Suspect]
     Indication: ANKYLOSING SPONDYLITIS
     Route: 048
     Dates: start: 20010101, end: 20010101
  2. VIOXX [Suspect]
     Route: 048
     Dates: start: 20020101, end: 20040101
  3. ZOCOR [Concomitant]
     Indication: BLOOD CHOLESTEROL INCREASED
     Route: 048
  4. METOPROLOL TARTRATE [Concomitant]
     Route: 048
  5. NITROGLYCERIN [Concomitant]
     Indication: CHEST PAIN
     Route: 048
  6. CELECOXIB [Concomitant]
     Indication: ANKYLOSING SPONDYLITIS
     Route: 048
     Dates: start: 20010101, end: 20020101
  7. CETIRIZINE HYDROCHLORIDE [Concomitant]
     Indication: PROPHYLAXIS
     Route: 065
  8. LANSOPRAZOLE [Concomitant]
     Indication: GASTROOESOPHAGEAL REFLUX DISEASE
     Route: 048
     Dates: start: 20020514, end: 20020813
  9. LANSOPRAZOLE [Concomitant]
     Route: 048
     Dates: start: 20040309
  10. ESOMEPRAZOLE MAGNESIUM [Concomitant]
     Route: 065
     Dates: start: 20040220, end: 20040308

REACTIONS (20)
  - ANGINA PECTORIS [None]
  - BRONCHITIS [None]
  - CHEST PAIN [None]
  - CORONARY ARTERY STENOSIS [None]
  - COUGH [None]
  - CYST [None]
  - DISEASE RECURRENCE [None]
  - DIZZINESS [None]
  - DYSPHONIA [None]
  - DYSPNOEA EXERTIONAL [None]
  - GASTRITIS [None]
  - GASTROOESOPHAGEAL REFLUX DISEASE [None]
  - HYPERPLASIA [None]
  - INCREASED UPPER AIRWAY SECRETION [None]
  - LARYNGEAL OEDEMA [None]
  - LARYNGITIS [None]
  - MITRAL VALVE INCOMPETENCE [None]
  - MUCOUS MEMBRANE DISORDER [None]
  - TRICUSPID VALVE INCOMPETENCE [None]
  - WHITE BLOOD CELL COUNT DECREASED [None]
